FAERS Safety Report 22319506 (Version 1)
Quarter: 2023Q2

REPORT INFORMATION
  Report Type: Report from Study
  Country: US (occurrence: US)
  Receive Date: 20230515
  Receipt Date: 20230515
  Transmission Date: 20230722
  Serious: Yes (Other)
  Sender: FDA-Public Use
  Company Number: US-ABBVIE-4760092

PATIENT
  Age: 74 Year
  Sex: Female
  Weight: 59.42 kg

DRUGS (21)
  1. DUOPA [Suspect]
     Active Substance: CARBIDOPA\LEVODOPA
     Indication: Parkinson^s disease
     Route: 050
     Dates: start: 20210725
  2. DUOPA [Suspect]
     Active Substance: CARBIDOPA\LEVODOPA
  3. COENZYME Q10 [Concomitant]
     Active Substance: DIETARY SUPPLEMENT\UBIDECARENONE
     Indication: Product used for unknown indication
     Route: 048
  4. NUPLAZID [Concomitant]
     Active Substance: PIMAVANSERIN TARTRATE
     Indication: Product used for unknown indication
     Route: 048
  5. ALEVE [Concomitant]
     Active Substance: NAPROXEN SODIUM
     Indication: Product used for unknown indication
     Route: 048
  6. CANNABIDIOL\HERBALS [Concomitant]
     Active Substance: CANNABIDIOL\HERBALS
     Indication: Product used for unknown indication
  7. REMERON [Concomitant]
     Active Substance: MIRTAZAPINE
     Indication: Emotional disorder
  8. stomahesive protective powder [Concomitant]
     Indication: Stoma complication
  9. NAPROXEN SODIUM [Concomitant]
     Active Substance: NAPROXEN SODIUM
     Indication: Arthritis
  10. RIVASTIGMINE [Concomitant]
     Active Substance: RIVASTIGMINE
     Indication: Product used for unknown indication
     Dosage: PATCH
  11. RIVASTIGMINE [Concomitant]
     Active Substance: RIVASTIGMINE
     Indication: Product used for unknown indication
     Dosage: PATCH
  12. PRAVASTATIN [Concomitant]
     Active Substance: PRAVASTATIN
     Indication: Blood cholesterol increased
     Route: 048
  13. NUPLAZID [Concomitant]
     Active Substance: PIMAVANSERIN TARTRATE
     Indication: Psychotic disorder
  14. SERTRALINE HYDROCHLORIDE [Concomitant]
     Active Substance: SERTRALINE HYDROCHLORIDE
     Indication: Productive cough
  15. DITROPAN [Concomitant]
     Active Substance: OXYBUTYNIN CHLORIDE
     Indication: Bladder disorder
  16. MELATONIN [Concomitant]
     Active Substance: MELATONIN
     Indication: Sleep disorder
  17. VITAMINS [Concomitant]
     Active Substance: VITAMINS
     Indication: Supplementation therapy
  18. REFRESH CLASSIC [Concomitant]
     Active Substance: POLYVINYL ALCOHOL\POVIDONE
     Indication: Dry eye
  19. OMEPRAZOLE [Concomitant]
     Active Substance: OMEPRAZOLE
     Indication: Antacid therapy
  20. MUCINEX [Concomitant]
     Active Substance: GUAIFENESIN
     Indication: Productive cough
     Dosage: 1200 CAPSULES
  21. MUCINEX [Concomitant]
     Active Substance: GUAIFENESIN
     Indication: Productive cough
     Dosage: 1200 CAPSULES

REACTIONS (7)
  - Cataract [Recovering/Resolving]
  - Stoma site pain [Not Recovered/Not Resolved]
  - Device difficult to use [Unknown]
  - Stoma site hypergranulation [Not Recovered/Not Resolved]
  - Stoma site discharge [Not Recovered/Not Resolved]
  - Visual impairment [Recovering/Resolving]
  - Stoma site pruritus [Recovering/Resolving]

NARRATIVE: CASE EVENT DATE: 20230401
